FAERS Safety Report 5252738-4 (Version None)
Quarter: 2007Q1

REPORT INFORMATION
  Report Type: 
  Country: None (occurrence: None)
  Receive Date: 20070301
  Receipt Date: 20061120
  Transmission Date: 20070707
  Serious: No
  Sender: FDA-Public Use
  Company Number: US-GLAXOSMITHKLINE-A0628128A

PATIENT
  Age: 43 Year
  Sex: Female

DRUGS (5)
  1. LAMICTAL [Suspect]
     Indication: BIPOLAR DISORDER
     Dosage: 500MG PER DAY
     Route: 048
  2. DEPAKOTE [Concomitant]
  3. HALCION [Concomitant]
  4. DESOXYN [Concomitant]
  5. ATIVAN [Concomitant]

REACTIONS (5)
  - ACCIDENTAL OVERDOSE [None]
  - BALANCE DISORDER [None]
  - DIZZINESS [None]
  - TREMOR [None]
  - VISUAL DISTURBANCE [None]
